FAERS Safety Report 9407730 (Version 1)
Quarter: 2013Q3

REPORT INFORMATION
  Report Type: Spontaneous
  Country: FR (occurrence: FR)
  Receive Date: 20130718
  Receipt Date: 20130718
  Transmission Date: 20140515
  Serious: Yes (Hospitalization)
  Sender: FDA-Public Use
  Company Number: FR-ELI_LILLY_AND_COMPANY-FR201307003065

PATIENT
  Age: 70 Year
  Sex: Female

DRUGS (11)
  1. CYMBALTA [Suspect]
     Dosage: 60 MG, QD
     Route: 048
     Dates: end: 20130324
  2. INEXIUM [Suspect]
     Dosage: 40 MG, QD
     Route: 048
     Dates: end: 20130324
  3. LASILIX [Suspect]
     Dosage: 60 MG, QD
     Route: 048
  4. HEMIGOXINE NATIVELLE [Concomitant]
     Dosage: 0.125 UNK, UNK
     Route: 065
  5. DAFALGAN [Concomitant]
     Dosage: 500 MG, UNK
     Route: 065
  6. KARDEGIC [Concomitant]
     Dosage: 75 DF, UNK
     Route: 065
  7. DIFFU K [Concomitant]
     Dosage: UNK, UNKNOWN
     Route: 065
  8. METEOSPASMYL                       /01017401/ [Concomitant]
     Dosage: UNK, UNKNOWN
     Route: 065
  9. SERETIDE [Concomitant]
     Dosage: UNK, UNKNOWN
     Route: 065
  10. BRONCHODUAL [Concomitant]
     Dosage: UNK, UNKNOWN
     Route: 065
  11. BRICANYL [Concomitant]
     Dosage: UNK, UNKNOWN
     Route: 065

REACTIONS (3)
  - Bronchospasm [Unknown]
  - Bronchitis [Unknown]
  - Hyponatraemia [Recovered/Resolved]
